FAERS Safety Report 20159695 (Version 1)
Quarter: 2021Q4

REPORT INFORMATION
  Report Type: Spontaneous
  Country: BG (occurrence: BG)
  Receive Date: 20211208
  Receipt Date: 20211208
  Transmission Date: 20220303
  Serious: No
  Sender: FDA-Public Use
  Company Number: BG-LUPIN PHARMACEUTICALS INC.-2021-23620

PATIENT
  Age: 44 Year
  Sex: Female

DRUGS (3)
  1. CLOBETASOL PROPIONATE [Suspect]
     Active Substance: CLOBETASOL PROPIONATE
     Indication: Erythema multiforme
     Dosage: UNK
     Route: 061
  2. DEXAMETHASONE [Suspect]
     Active Substance: DEXAMETHASONE
     Indication: Erythema multiforme
     Dosage: 4 MILLIGRAM, QD
     Route: 065
  3. ACYCLOVIR [Concomitant]
     Active Substance: ACYCLOVIR
     Indication: Oral herpes
     Dosage: UNK UNK, QD (5 X 200 MG/24 HOUR)
     Route: 065

REACTIONS (2)
  - Tachycardia [Recovering/Resolving]
  - Anxiety [Recovering/Resolving]
